FAERS Safety Report 7374253-4 (Version None)
Quarter: 2011Q1

REPORT INFORMATION
  Report Type: 
  Country: None (occurrence: None)
  Receive Date: 20110316
  Receipt Date: 20110302
  Transmission Date: 20110831
  Serious: Yes (Hospitalization)
  Sender: FDA-Public Use
  Company Number: 2011000980

PATIENT
  Age: 75 Year
  Sex: Female

DRUGS (14)
  1. TARCEVA [Suspect]
     Indication: LUNG ADENOCARCINOMA
     Dosage: (25 MG,QD),ORAL, (50 MG,QD),ORAL, (75 MG,QD),ORAL
     Route: 048
     Dates: start: 20100925
  2. TARCEVA [Suspect]
     Indication: LUNG ADENOCARCINOMA
     Dosage: (25 MG,QD),ORAL, (50 MG,QD),ORAL, (75 MG,QD),ORAL
     Route: 048
     Dates: start: 20101009
  3. TARCEVA [Suspect]
     Indication: LUNG ADENOCARCINOMA
     Dosage: (25 MG,QD),ORAL, (50 MG,QD),ORAL, (75 MG,QD),ORAL
     Route: 048
     Dates: start: 20101218
  4. TARCEVA [Suspect]
     Indication: LUNG ADENOCARCINOMA
     Dosage: (25 MG,QD),ORAL, (50 MG,QD),ORAL, (75 MG,QD),ORAL
     Route: 048
     Dates: start: 20100913, end: 20110104
  5. TARCEVA [Suspect]
     Indication: LUNG ADENOCARCINOMA
     Dosage: (25 MG,QD),ORAL, (50 MG,QD),ORAL, (75 MG,QD),ORAL
     Route: 048
     Dates: start: 20101023
  6. MAGMITT [Concomitant]
  7. PALGIN (PALGIN) [Concomitant]
  8. VESICARE [Concomitant]
  9. NOVAMIN (PROCHLORPERAZINE) [Concomitant]
  10. OXYCONTIN [Concomitant]
  11. LOXONIN (LOXOPROFEN SODIUM) [Concomitant]
  12. AMITRIPTYLINE HCL [Concomitant]
  13. SELBEX (TEPRENONE) [Concomitant]
  14. ALOSENN (ALOSENN) [Concomitant]

REACTIONS (2)
  - VOMITING [None]
  - PNEUMATOSIS INTESTINALIS [None]
